FAERS Safety Report 5087480-6 (Version None)
Quarter: 2006Q3

REPORT INFORMATION
  Report Type: 
  Country: None (occurrence: None)
  Receive Date: 20060823
  Receipt Date: 20060823
  Transmission Date: 20061208
  Serious: Yes (Hospitalization)
  Sender: FDA-Public Use
  Company Number: None

PATIENT
  Age: 20 Year
  Sex: Male
  Weight: 82.5 kg

DRUGS (4)
  1. CEFEPIME [Suspect]
     Indication: DEVICE RELATED INFECTION
     Dosage: 2 GM Q 12 H IV DRIP
     Route: 041
  2. CEFEPIME [Suspect]
     Indication: WOUND INFECTION
     Dosage: 2 GM Q 12 H IV DRIP
     Route: 041
  3. VANCOMYCIN [Suspect]
     Indication: DEVICE RELATED INFECTION
     Dosage: 1500 MG Q12 H IV DRIP
     Route: 041
  4. VANCOMYCIN [Suspect]
     Indication: WOUND INFECTION
     Dosage: 1500 MG Q12 H IV DRIP
     Route: 041

REACTIONS (2)
  - NEUTROPENIA [None]
  - WHITE BLOOD CELL COUNT DECREASED [None]
